FAERS Safety Report 12293930 (Version 2)
Quarter: 2016Q2

REPORT INFORMATION
  Report Type: Spontaneous
  Country: IN (occurrence: IN)
  Receive Date: 20160422
  Receipt Date: 20160428
  Transmission Date: 20160815
  Serious: Yes (Death, Hospitalization)
  Sender: FDA-Public Use
  Company Number: IN-ROCHE-1746018

PATIENT
  Age: 27 Year
  Sex: Male
  Weight: 73 kg

DRUGS (1)
  1. ACTILYSE [Suspect]
     Active Substance: ALTEPLASE
     Indication: ISCHAEMIC STROKE
     Dosage: WITHIN TWO HOURS.
     Route: 065
     Dates: start: 20160407, end: 20160407

REACTIONS (6)
  - Seizure [Unknown]
  - Drug ineffective [Unknown]
  - Loss of consciousness [Fatal]
  - Brain compression [Unknown]
  - Brain midline shift [Unknown]
  - Respiration abnormal [Unknown]

NARRATIVE: CASE EVENT DATE: 20160409
